FAERS Safety Report 7928961-4 (Version None)
Quarter: 2011Q4

REPORT INFORMATION
  Report Type: 
  Country: None (occurrence: None)
  Receive Date: 20111118
  Receipt Date: 20111115
  Transmission Date: 20120403
  Serious: Yes (Disabling)
  Sender: FDA-Public Use
  Company Number: US-MERCK-1108USA03681

PATIENT
  Age: 30 Year
  Sex: Male
  Weight: 82 kg

DRUGS (2)
  1. PROPECIA [Suspect]
     Indication: ANDROGENETIC ALOPECIA
     Route: 048
     Dates: start: 20110301, end: 20110331
  2. VITAMIN D (UNSPECIFIED) [Concomitant]
     Route: 065

REACTIONS (2)
  - FATIGUE [None]
  - ERECTILE DYSFUNCTION [None]
